FAERS Safety Report 6882313-7 (Version None)
Quarter: 2010Q3

REPORT INFORMATION
  Report Type: 
  Country: None (occurrence: None)
  Receive Date: 20100729
  Receipt Date: 20090821
  Transmission Date: 20110219
  Serious: No
  Sender: FDA-Public Use
  Company Number: US-MYLANLABS-2009S1014942

PATIENT
  Age: 55 Year
  Sex: Female
  Weight: 117.94 kg

DRUGS (3)
  1. SYNTHROID [Suspect]
     Indication: AUTOIMMUNE THYROIDITIS
     Route: 048
     Dates: start: 20090401, end: 20090501
  2. SYNTHROID [Suspect]
     Route: 048
     Dates: start: 20090501
  3. LEVOTHYROXINE SODIUM [Suspect]
     Indication: AUTOIMMUNE THYROIDITIS
     Route: 048
     Dates: start: 20090501

REACTIONS (7)
  - BLOOD THYROID STIMULATING HORMONE INCREASED [None]
  - DEPRESSION [None]
  - FATIGUE [None]
  - MUSCLE SPASMS [None]
  - OEDEMA PERIPHERAL [None]
  - PAIN IN EXTREMITY [None]
  - RASH [None]
